FAERS Safety Report 5820559-7 (Version None)
Quarter: 2008Q3

REPORT INFORMATION
  Report Type: 
  Country: None (occurrence: None)
  Receive Date: 20080724
  Receipt Date: 20071213
  Transmission Date: 20090109
  Serious: No
  Sender: FDA-Public Use
  Company Number: A0690531A

PATIENT
  Age: 60 Year
  Sex: Female
  Weight: 102.7 kg

DRUGS (9)
  1. AVANDIA [Suspect]
     Dosage: 8MG PER DAY
     Route: 048
     Dates: start: 19990101, end: 20070901
  2. METFORMIN [Concomitant]
  3. GLIPIZIDE [Concomitant]
  4. BLOOD PRESSURE MEDICATION [Concomitant]
  5. CHOLESTEROL REDUCING AGENT [Concomitant]
  6. DIURETIC [Concomitant]
  7. ASPIRIN [Concomitant]
  8. THYROID MEDICATION [Concomitant]
  9. UNKNOWN MEDICATION [Concomitant]

REACTIONS (1)
  - CHEST PAIN [None]
